FAERS Safety Report 21954307 (Version 1)
Quarter: 2023Q1

REPORT INFORMATION
  Report Type: Spontaneous
  Country: US (occurrence: US)
  Receive Date: 20230204
  Receipt Date: 20230204
  Transmission Date: 20230417
  Serious: No
  Sender: FDA-Public Use
  Company Number: US-BIOGEN-2022BI01156179

PATIENT
  Sex: Female

DRUGS (3)
  1. AMPYRA [Suspect]
     Active Substance: DALFAMPRIDINE
     Indication: Product used for unknown indication
     Dosage: UNK
     Route: 065
  2. TECFIDERA [Suspect]
     Active Substance: DIMETHYL FUMARATE
     Indication: Multiple sclerosis
     Dosage: UNK
     Route: 065
     Dates: start: 20160318, end: 2022
  3. DIMETHYL FUMARATE [Suspect]
     Active Substance: DIMETHYL FUMARATE
     Indication: Product used for unknown indication
     Dosage: UNKNOWN
     Route: 065

REACTIONS (11)
  - Influenza [Unknown]
  - Dysstasia [Unknown]
  - Temperature intolerance [Unknown]
  - Pain [Unknown]
  - Mobility decreased [Unknown]
  - Fall [Recovered/Resolved]
  - Impaired work ability [Unknown]
  - Product dose omission issue [Unknown]
  - Confusional state [Unknown]
  - Gait disturbance [Unknown]
  - Balance disorder [Unknown]
